FAERS Safety Report 5989520-6 (Version None)
Quarter: 2008Q4

REPORT INFORMATION
  Report Type: 
  Country: None (occurrence: None)
  Receive Date: 20081210
  Receipt Date: 20081201
  Transmission Date: 20090506
  Serious: Yes (Death, Other)
  Sender: FDA-Public Use
  Company Number: HQWYE830204AUG04

PATIENT
  Sex: Female
  Weight: 64.92 kg

DRUGS (4)
  1. PREMPRO [Suspect]
     Dosage: 0.625MG/2.5MG DAILY
     Route: 048
     Dates: start: 19950101, end: 20011101
  2. PREMARIN [Suspect]
     Dosage: 0.625MG DAILY
     Route: 048
     Dates: start: 19911119, end: 20020701
  3. MEDROXYPROGESTERONE [Suspect]
     Dosage: UNKNOWN
     Route: 048
     Dates: start: 19940101, end: 19950101
  4. PROVERA [Suspect]
     Route: 048
     Dates: start: 19911101, end: 19950101

REACTIONS (1)
  - BREAST CANCER METASTATIC [None]
